FAERS Safety Report 7062781-0 (Version None)
Quarter: 2010Q4

REPORT INFORMATION
  Report Type: 
  Country: None (occurrence: None)
  Receive Date: 20101026
  Receipt Date: 20100125
  Transmission Date: 20110411
  Serious: No
  Sender: FDA-Public Use
  Company Number: US-PFIZER INC-2010012423

PATIENT
  Age: 77 Year
  Sex: Male
  Weight: 79.4 kg

DRUGS (1)
  1. LIPITOR [Suspect]
     Indication: HIGH DENSITY LIPOPROTEIN DECREASED
     Dosage: 20 MG, 1X/DAY

REACTIONS (1)
  - HIGH DENSITY LIPOPROTEIN DECREASED [None]
